FAERS Safety Report 25307608 (Version 1)
Quarter: 2025Q2

REPORT INFORMATION
  Report Type: Spontaneous
  Country: JP (occurrence: JP)
  Receive Date: 20250513
  Receipt Date: 20250513
  Transmission Date: 20250716
  Serious: Yes (Hospitalization, Other)
  Sender: SANDOZ
  Company Number: JP-asahikaseip-2025-AER-01343

PATIENT
  Sex: Female

DRUGS (2)
  1. RECLAST [Suspect]
     Active Substance: ZOLEDRONIC ACID
     Indication: Product used for unknown indication
     Route: 041
     Dates: start: 2023, end: 2023
  2. TERIPARATIDE ACETATE [Suspect]
     Active Substance: TERIPARATIDE ACETATE
     Indication: Joint prosthesis user
     Dosage: 56.500UG WEEK
     Route: 058
     Dates: start: 2025

REACTIONS (5)
  - Joint prosthesis user [Unknown]
  - Osteonecrosis of jaw [Not Recovered/Not Resolved]
  - Dental dysaesthesia [Not Recovered/Not Resolved]
  - Nausea [Recovered/Resolved]
  - Headache [Recovered/Resolved]

NARRATIVE: CASE EVENT DATE: 20250101
